FAERS Safety Report 8341539-6 (Version None)
Quarter: 2012Q2

REPORT INFORMATION
  Report Type: 
  Country: None (occurrence: None)
  Receive Date: 20120507
  Receipt Date: 20100326
  Transmission Date: 20120825
  Serious: No
  Sender: FDA-Public Use
  Company Number: US-TEVA-2010001785

PATIENT
  Age: 75 Year
  Sex: Female

DRUGS (6)
  1. TYLENOL (CAPLET) [Concomitant]
  2. ZOFRAN [Concomitant]
  3. BENADRYL [Concomitant]
  4. TREANDA [Suspect]
     Indication: CHRONIC LYMPHOCYTIC LEUKAEMIA
     Route: 042
  5. RITUXAN [Concomitant]
  6. DEXAMETHASONE [Concomitant]

REACTIONS (2)
  - INFUSION SITE PAIN [None]
  - INJECTION SITE SWELLING [None]
